FAERS Safety Report 24843155 (Version 1)
Quarter: 2025Q1

REPORT INFORMATION
  Report Type: Spontaneous
  Country: US (occurrence: US)
  Receive Date: 20250115
  Receipt Date: 20250115
  Transmission Date: 20250409
  Serious: No
  Sender: GE HEALTHCARE
  Company Number: US-GE HEALTHCARE-2024CSU013215

PATIENT
  Age: 64 Year
  Sex: Male

DRUGS (2)
  1. DATSCAN [Suspect]
     Active Substance: IODINE\IOFLUPANE I-123
     Indication: Imaging procedure
     Route: 065
     Dates: start: 20241105, end: 20241105
  2. IOSAT [Concomitant]
     Active Substance: POTASSIUM IODIDE
     Dosage: 150 MG, SINGLE
     Route: 065
     Dates: start: 20241105, end: 20241105

REACTIONS (2)
  - Drug ineffective [Recovered/Resolved]
  - No adverse event [Recovered/Resolved]

NARRATIVE: CASE EVENT DATE: 20241105
